FAERS Safety Report 16327841 (Version 1)
Quarter: 2019Q2

REPORT INFORMATION
  Report Type: Spontaneous
  Country: DE (occurrence: DE)
  Receive Date: 20190518
  Receipt Date: 20190518
  Transmission Date: 20190711
  Serious: Yes (Death, Hospitalization)
  Sender: FDA-Public Use
  Company Number: PHHY2019DE111451

PATIENT
  Age: 55 Year
  Sex: Female

DRUGS (33)
  1. LAXOBERAL [Concomitant]
     Active Substance: SODIUM PICOSULFATE
     Indication: CONSTIPATION
     Dosage: 15 GTT, UNK
     Route: 048
  2. CYTOTEC [Concomitant]
     Active Substance: MISOPROSTOL
     Indication: PROPHYLAXIS
     Dosage: 200 MG, UNK
     Route: 048
  3. VANCOMYCIN [Concomitant]
     Active Substance: VANCOMYCIN
     Indication: ABSCESS
     Dosage: UNK
     Route: 042
  4. RINGERS SOLUTION [Concomitant]
     Active Substance: CALCIUM CHLORIDE\POTASSIUM CHLORIDE\SODIUM CHLORIDE
     Indication: FLUID REPLACEMENT
     Dosage: 500 ML, UNK
     Route: 042
  5. CLAFORAN [Concomitant]
     Active Substance: CEFOTAXIME SODIUM
     Indication: ABSCESS
     Dosage: 2 G, UNK
     Route: 042
  6. CLEXANE [Suspect]
     Active Substance: ENOXAPARIN SODIUM
     Indication: THROMBOSIS PROPHYLAXIS
     Dosage: 0.2 ML, UNK
     Route: 058
  7. PHENHYDAN FOR INJECTION [Concomitant]
     Active Substance: PHENYTOIN SODIUM
     Indication: EPILEPSY
     Dosage: UNK
     Route: 042
  8. FORTECORTIN [Concomitant]
     Active Substance: DEXAMETHASONE
     Indication: PROPHYLAXIS
     Dosage: UNK
     Route: 050
  9. VALIUM [Concomitant]
     Active Substance: DIAZEPAM
     Indication: SEDATION
     Dosage: UNK
     Route: 048
     Dates: start: 19970603, end: 19970701
  10. ZOFRAN [Suspect]
     Active Substance: ONDANSETRON HYDROCHLORIDE
     Indication: NAUSEA
     Dosage: 8 MG, UNK
     Route: 042
  11. SPIZEF (CEFOTIAM HYDROCHLORIDE) [Suspect]
     Active Substance: CEFOTIAM HYDROCHLORIDE
     Indication: PNEUMONIA
     Dosage: 2 G, UNK
     Route: 042
  12. ATOSIL [Concomitant]
     Indication: SEDATION
     Dosage: UNK
     Route: 042
  13. EUGALAC [Concomitant]
     Indication: CONSTIPATION
     Dosage: UNK
     Route: 048
  14. TAVOR [SIMVASTATIN] [Suspect]
     Active Substance: SIMVASTATIN
     Indication: NERVOUSNESS
     Dosage: 1 MG, UNK
     Route: 048
  15. VALDISPERT [Suspect]
     Active Substance: HERBALS
     Indication: SEDATION
     Dosage: 1 DF, UNK
     Route: 048
  16. BACTRIM [Suspect]
     Active Substance: SULFAMETHOXAZOLE\TRIMETHOPRIM
     Indication: URINARY TRACT INFECTION
     Dosage: 1 DF, UNK
     Route: 048
  17. ORFIRIL [Concomitant]
     Active Substance: VALPROATE SODIUM
     Indication: EPILEPSY
     Dosage: 150 MG, UNK
     Route: 048
  18. SAROTEN RETARD [Suspect]
     Active Substance: AMITRIPTYLINE
     Indication: DEPRESSION
     Dosage: 50 MG, UNK
     Route: 048
  19. RIVOTRIL [Concomitant]
     Active Substance: CLONAZEPAM
     Indication: EPILEPSY
     Dosage: 1 G, UNK
     Route: 042
  20. JONOSTERIL [Concomitant]
     Dosage: 500 ML, UNK
     Route: 042
  21. PARACETAMOL [Concomitant]
     Active Substance: ACETAMINOPHEN
     Indication: PYREXIA
     Dosage: 1 G, UNK
     Route: 054
  22. NOCTAMID [Suspect]
     Active Substance: LORMETAZEPAM
     Indication: SLEEP DISORDER
     Dosage: 2 MG, UNK
     Route: 048
  23. EUNERPAN [Suspect]
     Active Substance: MELPERONE HYDROCHLORIDE
     Indication: SEDATION
     Dosage: UNK
     Route: 048
  24. FOSFOCIN [Concomitant]
     Indication: ABSCESS
     Dosage: UNK
     Route: 042
  25. TITANIUM. [Concomitant]
     Active Substance: TITANIUM
     Indication: COMPUTERISED TOMOGRAM
     Dosage: UNK
     Route: 042
  26. NOVALGIN (METAMIZOLE SODIUM) [Concomitant]
     Active Substance: METAMIZOLE SODIUM
     Indication: PAIN PROPHYLAXIS
     Dosage: 2 ML, UNK
     Route: 042
  27. JONOSTERIL [Concomitant]
     Indication: FLUID REPLACEMENT
     Dosage: 500 ML, UNK
     Route: 042
  28. JONOSTERIL [Concomitant]
     Dosage: 500 ML, UNK
     Route: 042
  29. ZENTROPIL [Suspect]
     Active Substance: PHENYTOIN
     Indication: EPILEPSY
     Dosage: 1 DF, UNK
     Route: 048
  30. VOMEX A [Suspect]
     Active Substance: DIMENHYDRINATE
     Indication: NAUSEA
     Dosage: 1 DF, UNK
     Route: 054
  31. REFOBACIN [Concomitant]
     Active Substance: GENTAMICIN SULFATE
     Indication: ABSCESS
     Dosage: UNK
     Route: 042
  32. JONOSTERIL [Concomitant]
     Dosage: 500 ML, UNK
     Route: 042
  33. PEPDUL [Concomitant]
     Active Substance: FAMOTIDINE
     Indication: PROPHYLAXIS
     Dosage: 1 DF, UNK
     Route: 048

REACTIONS (10)
  - Toxic epidermal necrolysis [Fatal]
  - Rash vesicular [Unknown]
  - Oedema mucosal [Unknown]
  - Swelling face [Unknown]
  - Genital rash [Unknown]
  - Erythema [Unknown]
  - Headache [Unknown]
  - Rash [Unknown]
  - Pyrexia [Unknown]
  - Lip swelling [Unknown]

NARRATIVE: CASE EVENT DATE: 19970630
